FAERS Safety Report 20303266 (Version 1)
Quarter: 2022Q1

REPORT INFORMATION
  Report Type: Spontaneous
  Country: US (occurrence: US)
  Receive Date: 20220106
  Receipt Date: 20220106
  Transmission Date: 20220423
  Serious: Yes (Other)
  Sender: FDA-Public Use
  Company Number: US-AUROBINDO-AUR-APL-2021-041175

PATIENT
  Sex: Male

DRUGS (1)
  1. ZIPRASIDONE HYDROCHLORIDE [Suspect]
     Active Substance: ZIPRASIDONE HYDROCHLORIDE
     Indication: Product used for unknown indication
     Dosage: TWO TIMES A DAY
     Route: 065
     Dates: start: 20210912, end: 20210916

REACTIONS (8)
  - Hallucination [Recovered/Resolved]
  - Chest pain [Recovered/Resolved]
  - Dizziness [Recovered/Resolved]
  - Somnolence [Recovered/Resolved]
  - Pain [Recovered/Resolved]
  - Agitation [Recovered/Resolved]
  - Hypoacusis [Recovered/Resolved]
  - Product substitution issue [Unknown]

NARRATIVE: CASE EVENT DATE: 20210912
